FAERS Safety Report 8143656-2 (Version None)
Quarter: 2012Q1

REPORT INFORMATION
  Report Type: 
  Country: None (occurrence: None)
  Receive Date: 20120217
  Receipt Date: 20120216
  Transmission Date: 20120608
  Serious: Yes (Other)
  Sender: FDA-Public Use
  Company Number: US-BAYER-2012-015877

PATIENT
  Age: 29 Year
  Sex: Female

DRUGS (3)
  1. YAZ [Suspect]
     Dosage: UNK
     Dates: start: 20080301, end: 20091201
  2. YASMIN [Suspect]
     Dosage: UNK
     Dates: start: 20080301, end: 20091201
  3. DROSPIRENONE AND ETHINYL ESTRADIOL [Suspect]
     Dosage: UNK
     Dates: start: 20080301, end: 20091201

REACTIONS (1)
  - GALLBLADDER DISORDER [None]
